FAERS Safety Report 8920414 (Version 3)
Quarter: 2013Q2

REPORT INFORMATION
  Report Type: Spontaneous
  Country: CA (occurrence: CA)
  Receive Date: 20121121
  Receipt Date: 20130422
  Transmission Date: 20140414
  Serious: Yes (Hospitalization, Other)
  Sender: FDA-Public Use
  Company Number: CA-ELI_LILLY_AND_COMPANY-CA201211005281

PATIENT
  Age: 71 Year
  Sex: Female
  Weight: 54.42 kg

DRUGS (15)
  1. FORTEO [Suspect]
     Indication: OSTEOPOROSIS
     Dosage: 20 UG, QD
     Route: 058
     Dates: start: 20120412
  2. PREDNISONE [Concomitant]
  3. AZITHROMYCIN [Concomitant]
  4. SYNTHROID [Concomitant]
  5. HTZ [Concomitant]
  6. NORVASC [Concomitant]
  7. RAMIPRIL [Concomitant]
  8. VITAMIN D [Concomitant]
  9. ATIVAN [Concomitant]
  10. EFFEXOR [Concomitant]
  11. LIPITOR [Concomitant]
  12. ADVAIR [Concomitant]
  13. VENTOLIN                           /00139501/ [Concomitant]
  14. SPIRIVA [Concomitant]
  15. LANSOPRAZOL [Concomitant]

REACTIONS (3)
  - Emphysema [Unknown]
  - Chronic obstructive pulmonary disease [Unknown]
  - Gait disturbance [Unknown]
